FAERS Safety Report 8465063-5 (Version None)
Quarter: 2012Q2

REPORT INFORMATION
  Report Type: 
  Country: None (occurrence: None)
  Receive Date: 20120626
  Receipt Date: 20120618
  Transmission Date: 20120825
  Serious: Yes (Other)
  Sender: FDA-Public Use
  Company Number: US-BAYER-2012-061013

PATIENT
  Age: 18 Year
  Sex: Female
  Weight: 76.19 kg

DRUGS (8)
  1. HYDROCODONE BITARTRATE AND ACETAMINOPHEN [Concomitant]
     Dosage: 10-650 MG
  2. METHYLPREDNISOLONE [Concomitant]
     Dosage: 4 MG, UNK
  3. RANITIDINE [Concomitant]
  4. YASMIN [Suspect]
  5. CEPHALEXIN [Concomitant]
     Dosage: 500 MG, UNK
  6. YAZ [Suspect]
  7. ZYRTEC [Concomitant]
  8. AMBIEN [Concomitant]

REACTIONS (1)
  - HEPATIC VEIN THROMBOSIS [None]
